FAERS Safety Report 13052332 (Version 7)
Quarter: 2019Q4

REPORT INFORMATION
  Report Type: Report from Study
  Country: US (occurrence: US)
  Receive Date: 20161221
  Receipt Date: 20191220
  Transmission Date: 20200122
  Serious: Yes (Other)
  Sender: FDA-Public Use
  Company Number: US-ACTELION-A-US2016-143553

PATIENT
  Age: 77 Year
  Sex: Female
  Weight: 70.3 kg

DRUGS (10)
  1. UPTRAVI [Suspect]
     Active Substance: SELEXIPAG
     Indication: PULMONARY HYPERTENSION
     Dosage: 1000 MCG, BID
     Route: 048
  2. UPTRAVI [Suspect]
     Active Substance: SELEXIPAG
     Dosage: 600 MCG, BID
     Route: 048
  3. UPTRAVI [Suspect]
     Active Substance: SELEXIPAG
     Dosage: 800 MCG, BID
     Route: 048
     Dates: start: 20160906
  4. ADEMPAS [Suspect]
     Active Substance: RIOCIGUAT
     Indication: PRODUCT USED FOR UNKNOWN INDICATION
     Route: 065
  5. UPTRAVI [Suspect]
     Active Substance: SELEXIPAG
     Dosage: 1400 MCG, BID
     Route: 048
  6. LETAIRIS [Concomitant]
     Active Substance: AMBRISENTAN
     Dosage: UNK
  7. UPTRAVI [Suspect]
     Active Substance: SELEXIPAG
     Dosage: 1200 MCG, BID
     Route: 048
  8. REVATIO [Concomitant]
     Active Substance: SILDENAFIL CITRATE
     Dosage: UNK
  9. LASIX [Concomitant]
     Active Substance: FUROSEMIDE
  10. AMBRISENTAN [Concomitant]
     Active Substance: AMBRISENTAN

REACTIONS (17)
  - Nerve compression [Unknown]
  - Loss of personal independence in daily activities [Unknown]
  - Myalgia [Recovered/Resolved]
  - Arthralgia [Unknown]
  - Insomnia [Unknown]
  - Abdominal pain upper [Unknown]
  - Oxygen saturation abnormal [Unknown]
  - Dizziness [Unknown]
  - Deafness [Unknown]
  - Headache [Unknown]
  - Nausea [Unknown]
  - Fatigue [Recovered/Resolved]
  - Pain [Unknown]
  - Expired product administered [Unknown]
  - Malaise [Unknown]
  - Pain in extremity [Unknown]
  - Back pain [Unknown]

NARRATIVE: CASE EVENT DATE: 20161019
